FAERS Safety Report 20834225 (Version 1)
Quarter: 2022Q2

REPORT INFORMATION
  Report Type: 
  Country: None (occurrence: None)
  Receive Date: 20220516
  Receipt Date: 20220516
  Transmission Date: 20220721
  Serious: No
  Sender: FDA-Public Use
  Company Number: US-ROCHE-3095474

PATIENT
  Weight: 35.2 kg

DRUGS (1)
  1. ENTRECTINIB [Suspect]
     Active Substance: ENTRECTINIB
     Dosage: DATE OF MOST RECENT DOSE OF ENCRETINIB PRIOR TO SAE: 29/APRIL/2022
     Dates: start: 20200608

REACTIONS (1)
  - Pain [None]

NARRATIVE: CASE EVENT DATE: 20220430
